FAERS Safety Report 8579250-9 (Version None)
Quarter: 2012Q3

REPORT INFORMATION
  Report Type: 
  Country: None (occurrence: None)
  Receive Date: 20120730
  Receipt Date: 20120730
  Transmission Date: 20120928
  Serious: No
  Sender: FDA-Public Use
  Company Number: None

PATIENT
  Sex: Female

DRUGS (2)
  1. DEPAKOTE ER [Suspect]
     Indication: MOOD SWINGS
     Dosage: DEPAKOTE 500 MG 2 TABLETS BY MOUTH
     Route: 048
     Dates: start: 20090201, end: 20090301
  2. DEPAKOTE ER [Suspect]
     Indication: MAJOR DEPRESSION
     Dosage: DEPAKOTE 500 MG 2 TABLETS BY MOUTH
     Route: 048
     Dates: start: 20090201, end: 20090301

REACTIONS (4)
  - ANGER [None]
  - PRODUCT SUBSTITUTION ISSUE [None]
  - IRRITABILITY [None]
  - DEPRESSED MOOD [None]
